FAERS Safety Report 5103866-5 (Version None)
Quarter: 2006Q3

REPORT INFORMATION
  Report Type: 
  Country: None (occurrence: None)
  Receive Date: 20060913
  Receipt Date: 20060627
  Transmission Date: 20061208
  Serious: Yes (Hospitalization)
  Sender: FDA-Public Use
  Company Number: J200601927

PATIENT
  Age: 9 Year
  Sex: Female

DRUGS (1)
  1. SAWACILLIN [Suspect]
     Indication: STREPTOCOCCAL INFECTION
     Dosage: 250MG THREE TIMES PER DAY
     Route: 048
     Dates: start: 20060608, end: 20060616

REACTIONS (4)
  - ERYTHEMA [None]
  - ERYTHEMA MULTIFORME [None]
  - PIGMENTATION DISORDER [None]
  - PYREXIA [None]
